FAERS Safety Report 4295034-4 (Version None)
Quarter: 2004Q1

REPORT INFORMATION
  Report Type: 
  Country: None (occurrence: None)
  Receive Date: 20040212
  Receipt Date: 20040212
  Transmission Date: 20041129
  Serious: Yes (Hospitalization)
  Sender: FDA-Public Use
  Company Number: None

PATIENT
  Sex: Female
  Weight: 73.9363 kg

DRUGS (2)
  1. NAVELBINE [Suspect]
     Indication: BREAST CANCER STAGE IV
     Dosage: 27.5 MG/M2 DAY 8 AND 15 INTRAVENOUS
     Route: 042
     Dates: start: 20031202, end: 20040203
  2. FILGRASTIM [Suspect]
     Indication: BREAST CANCER STAGE IV
     Dosage: 5 UG DAY 2-21 SUBCUTANEOUS
     Route: 058
     Dates: start: 20031202, end: 20040203

REACTIONS (2)
  - HAEMOPTYSIS [None]
  - PNEUMONIA [None]
